FAERS Safety Report 5755640-4 (Version None)
Quarter: 2008Q2

REPORT INFORMATION
  Report Type: 
  Country: None (occurrence: None)
  Receive Date: 20080602
  Receipt Date: 20080520
  Transmission Date: 20081010
  Serious: Yes (Hospitalization)
  Sender: FDA-Public Use
  Company Number: JP-ROCHE-560178

PATIENT
  Sex: Female
  Weight: 58 kg

DRUGS (9)
  1. PEGASYS [Suspect]
     Indication: HEPATITIS C
     Route: 058
     Dates: start: 20071221, end: 20080411
  2. TAKEPRON [Concomitant]
     Route: 048
     Dates: start: 20070824, end: 20080416
  3. HYPEN [Concomitant]
     Route: 048
     Dates: start: 20070824, end: 20080416
  4. NORVASC [Concomitant]
     Route: 048
  5. DIOVAN [Concomitant]
     Route: 048
  6. AMARYL [Concomitant]
     Route: 048
  7. URSO 250 [Concomitant]
     Route: 048
  8. METFORMIN HYDROCHLORIDE [Concomitant]
     Dosage: DRUG NAME REPORTED AS: MEDET
     Route: 048
  9. BASEN [Concomitant]
     Route: 048

REACTIONS (2)
  - ASCITES [None]
  - PLEURAL EFFUSION [None]
